FAERS Safety Report 9271637 (Version 1)
Quarter: 2013Q2

REPORT INFORMATION
  Report Type: Spontaneous
  Country: FR (occurrence: FR)
  Receive Date: 20130506
  Receipt Date: 20130506
  Transmission Date: 20140414
  Serious: Yes (Disabling)
  Sender: FDA-Public Use
  Company Number: FR-PFIZER INC-2013134097

PATIENT
  Age: 77 Year
  Sex: Male

DRUGS (4)
  1. DOXORUBICIN HCL [Suspect]
     Route: 042
  2. BLEOMYCIN [Suspect]
     Route: 042
  3. VELBE [Suspect]
     Route: 042
  4. DETICENE [Suspect]
     Route: 042

REACTIONS (1)
  - Pulmonary fibrosis [Recovered/Resolved with Sequelae]
